FAERS Safety Report 9602569 (Version 5)
Quarter: 2015Q2

REPORT INFORMATION
  Report Type: Spontaneous
  Country: US (occurrence: US)
  Receive Date: 20131007
  Receipt Date: 20150414
  Transmission Date: 20150821
  Serious: Yes (Other)
  Sender: FDA-Public Use
  Company Number: US-PFIZER INC-2013283417

PATIENT
  Age: 62 Year
  Sex: Female

DRUGS (12)
  1. PRIMIDONE. [Concomitant]
     Active Substance: PRIMIDONE
     Dosage: 250 MG, 2X/DAY
  2. PROVERA [Concomitant]
     Active Substance: MEDROXYPROGESTERONE ACETATE
     Dosage: UNK, AS NEEDED
     Dates: start: 1995
  3. PAXIL [Concomitant]
     Active Substance: PAROXETINE HYDROCHLORIDE
     Dosage: 20 MG, 1X/DAY
  4. DILANTIN-125 [Suspect]
     Active Substance: PHENYTOIN
     Dosage: 400 MG, 1X/DAY (Q.H.S., FOR A WEEK)
  5. PREMARIN [Concomitant]
     Active Substance: ESTROGENS, CONJUGATED
     Dosage: UNK, AS NEEDED
     Dates: start: 1995
  6. SYNTHROID [Concomitant]
     Active Substance: LEVOTHYROXINE SODIUM
     Dosage: 75 MG, 1X/DAY
  7. DILANTIN-125 [Suspect]
     Active Substance: PHENYTOIN
     Indication: SEIZURE
     Dosage: 500 MG, 1X/DAY (Q.H.S)
     Dates: start: 1960, end: 201003
  8. VITAMIN D [Concomitant]
     Active Substance: CHOLECALCIFEROL
     Dosage: UNK, 50000 Q WEEK
  9. ZOLOFT [Concomitant]
     Active Substance: SERTRALINE HYDROCHLORIDE
     Dosage: UNK, AS NEEDED
     Dates: start: 1995
  10. DILANTIN-125 [Suspect]
     Active Substance: PHENYTOIN
     Dosage: 300 MG, 1X/DAY (Q.H.S., FOR A WEEK)
  11. DILANTIN-125 [Suspect]
     Active Substance: PHENYTOIN
     Dosage: 200 MG, 1X/DAY (Q.H.S., FOR A WEEK)
  12. DILANTIN-125 [Suspect]
     Active Substance: PHENYTOIN
     Dosage: 100 MG, 1X/DAY (Q.H.S., FOR A WEEK)

REACTIONS (4)
  - Cerebellar atrophy [Not Recovered/Not Resolved]
  - Nervous system disorder [Unknown]
  - Limb deformity [Unknown]
  - Neuropathy peripheral [Not Recovered/Not Resolved]

NARRATIVE: CASE EVENT DATE: 2009
